FAERS Safety Report 9122037 (Version 2)
Quarter: 2013Q1

REPORT INFORMATION
  Report Type: Spontaneous
  Country: IL (occurrence: IL)
  Receive Date: 20130227
  Receipt Date: 20130305
  Transmission Date: 20140127
  Serious: Yes (Hospitalization)
  Sender: FDA-Public Use
  Company Number: PHHY2013IL018412

PATIENT
  Age: 67 Year
  Sex: Female

DRUGS (2)
  1. SANDOSTATIN LAR [Suspect]
     Indication: ACROMEGALY
     Dosage: 10 MG, UNK
     Dates: start: 20120217
  2. SANDOSTATIN LAR [Suspect]
     Dosage: 10 MG, UNK
     Dates: start: 20130124

REACTIONS (4)
  - Fall [Unknown]
  - Pulmonary embolism [Unknown]
  - Asthenia [Unknown]
  - Hypoxia [Unknown]
